FAERS Safety Report 25915598 (Version 1)
Quarter: 2025Q4

REPORT INFORMATION
  Report Type: Spontaneous
  Country: ZA (occurrence: ZA)
  Receive Date: 20251013
  Receipt Date: 20251013
  Transmission Date: 20260117
  Serious: Yes (Other)
  Sender: PFIZER
  Company Number: ZA-PFIZER INC-PV202500121301

PATIENT
  Age: 53 Year
  Sex: Male

DRUGS (1)
  1. XELJANZ [Suspect]
     Active Substance: TOFACITINIB CITRATE
     Dosage: 5 MG, 2X/DAY
     Route: 048
     Dates: start: 20250825

REACTIONS (6)
  - Haemorrhoids [Unknown]
  - Blood pressure increased [Unknown]
  - Hypertension [Unknown]
  - Constipation [Unknown]
  - Anxiety [Unknown]
  - Tension [Unknown]

NARRATIVE: CASE EVENT DATE: 20250101
